FAERS Safety Report 25341322 (Version 1)
Quarter: 2025Q2

REPORT INFORMATION
  Report Type: Spontaneous
  Country: US (occurrence: None)
  Receive Date: 20250521
  Receipt Date: 20250521
  Transmission Date: 20250716
  Serious: No
  Sender: FDA-CTU
  Company Number: None

PATIENT
  Age: 6 Year
  Sex: Female
  Weight: 17.3 kg

DRUGS (2)
  1. CISPLATIN [Suspect]
     Active Substance: CISPLATIN
  2. ETOPOSIDE [Suspect]
     Active Substance: ETOPOSIDE

REACTIONS (5)
  - Nausea [None]
  - Vomiting [None]
  - Influenza [None]
  - Weight decreased [None]
  - Hypertension [None]

NARRATIVE: CASE EVENT DATE: 20250104
